FAERS Safety Report 8354174-0 (Version None)
Quarter: 2012Q2

REPORT INFORMATION
  Report Type: 
  Country: None (occurrence: None)
  Receive Date: 20120511
  Receipt Date: 20120509
  Transmission Date: 20120825
  Serious: Yes (Life-Threatening, Hospitalization, Other)
  Sender: FDA-Public Use
  Company Number: PHHY2012ES039348

PATIENT
  Age: 71 Year
  Sex: Female

DRUGS (3)
  1. IBUPROFEN [Suspect]
     Dosage: 600 MG, DAILY
     Route: 048
     Dates: start: 20091229, end: 20091229
  2. SINTROM [Interacting]
     Route: 048
     Dates: end: 20091230
  3. ENALAPRIL MALEATE [Concomitant]
     Indication: HYPERTENSION
     Dosage: 20 MG, QD
     Dates: start: 20091023

REACTIONS (9)
  - HAEMATEMESIS [None]
  - MELAENA [None]
  - HAEMATOCRIT DECREASED [None]
  - THROMBOSIS [None]
  - DRUG INTERACTION [None]
  - UPPER GASTROINTESTINAL HAEMORRHAGE [None]
  - GASTRIC MUCOSAL LESION [None]
  - BLOOD PRESSURE DECREASED [None]
  - INTERNATIONAL NORMALISED RATIO INCREASED [None]
